FAERS Safety Report 9241571 (Version 2)
Quarter: 2013Q2

REPORT INFORMATION
  Report Type: Spontaneous
  Country: US (occurrence: US)
  Receive Date: 20130419
  Receipt Date: 20130517
  Transmission Date: 20140414
  Serious: Yes (Other)
  Sender: FDA-Public Use
  Company Number: US-PFIZER INC-2013123165

PATIENT
  Sex: Male

DRUGS (2)
  1. TIKOSYN [Suspect]
     Dosage: UNK
  2. BACTRIM [Suspect]
     Dosage: UNK

REACTIONS (2)
  - Prostate infection [Unknown]
  - Intercepted drug prescribing error [Unknown]
